FAERS Safety Report 21213288 (Version 1)
Quarter: 2022Q3

REPORT INFORMATION
  Report Type: Other
  Country: US (occurrence: US)
  Receive Date: 20220815
  Receipt Date: 20220815
  Transmission Date: 20221026
  Serious: Yes (Hospitalization, Other)
  Sender: FDA-Public Use
  Company Number: US-HLS-202201430

PATIENT
  Age: 34 Year
  Sex: Male

DRUGS (2)
  1. CLOZAPINE [Suspect]
     Active Substance: CLOZAPINE
     Indication: Schizophrenia
     Dosage: TITRATED TO 200 MG ORAL NIGHTLY, TAPERED TO 100 MG.
     Route: 048
  2. CLOZAPINE [Suspect]
     Active Substance: CLOZAPINE
     Indication: Schizophrenia
     Dosage: UNKNOWN
     Route: 065

REACTIONS (8)
  - Blood creatine phosphokinase increased [Recovered/Resolved]
  - Chest pain [Recovered/Resolved]
  - Psychiatric decompensation [Recovered/Resolved]
  - Fibrin D dimer increased [Recovered/Resolved]
  - Myalgia [Recovered/Resolved]
  - Pulmonary embolism [Recovered/Resolved]
  - Rhabdomyolysis [Recovered/Resolved]
  - Tachycardia [Recovered/Resolved]
